FAERS Safety Report 8115426-2 (Version None)
Quarter: 2012Q1

REPORT INFORMATION
  Report Type: 
  Country: None (occurrence: None)
  Receive Date: 20120206
  Receipt Date: 20120124
  Transmission Date: 20120608
  Serious: Yes (Other)
  Sender: FDA-Public Use
  Company Number: US-ELI_LILLY_AND_COMPANY-US201201007569

PATIENT
  Age: 58 Year
  Sex: Male

DRUGS (2)
  1. ZYPREXA [Suspect]
     Dosage: 10 MG, QD
     Route: 065
  2. ZYPREXA [Suspect]
     Indication: DELUSION
     Dosage: 5 MG, QD
     Route: 065
     Dates: start: 20110101

REACTIONS (3)
  - TRANSIENT ISCHAEMIC ATTACK [None]
  - DRUG INEFFECTIVE [None]
  - ADVERSE EVENT [None]
